FAERS Safety Report 8134448-9 (Version None)
Quarter: 2012Q1

REPORT INFORMATION
  Report Type: 
  Country: None (occurrence: None)
  Receive Date: 20120214
  Receipt Date: 20120214
  Transmission Date: 20120608
  Serious: Yes (Death)
  Sender: FDA-Public Use
  Company Number: None

PATIENT
  Sex: Female

DRUGS (2)
  1. ASPIRIN [Concomitant]
     Indication: THROMBOSIS IN DEVICE
     Dosage: 1 PILL
     Dates: start: 20090515, end: 20091204
  2. PLAVIX [Suspect]
     Indication: THROMBOSIS PROPHYLAXIS
     Dates: start: 20090515, end: 20091204

REACTIONS (3)
  - COAGULOPATHY [None]
  - CEREBRAL HAEMORRHAGE [None]
  - FALL [None]
